FAERS Safety Report 15609007 (Version 2)
Quarter: 2018Q4

REPORT INFORMATION
  Report Type: Spontaneous
  Country: CH (occurrence: CH)
  Receive Date: 20181112
  Receipt Date: 20181113
  Transmission Date: 20190205
  Serious: Yes (Hospitalization)
  Sender: FDA-Public Use
  Company Number: CH-ELI_LILLY_AND_COMPANY-CH201811003676

PATIENT
  Age: 70 Year
  Sex: Male

DRUGS (12)
  1. ERBITUX [Suspect]
     Active Substance: CETUXIMAB
     Indication: TONSIL CANCER
     Dosage: UNK UNK, UNKNOWN
     Route: 065
     Dates: start: 201805
  2. MOVICOL APELSIN [Concomitant]
     Indication: PRODUCT USED FOR UNKNOWN INDICATION
     Dosage: UNK UNK, DAILY READY-TO-DRINK SOLUTION, SACHET
     Dates: start: 20180807
  3. ONDANSETRON [Concomitant]
     Active Substance: ONDANSETRON
     Indication: PRODUCT USED FOR UNKNOWN INDICATION
     Dosage: 8 MG, PRN
     Route: 048
     Dates: start: 20180529
  4. MOTILIUM EXPRESS [Concomitant]
     Indication: PRODUCT USED FOR UNKNOWN INDICATION
     Dosage: 10 MG, PRN
     Route: 060
     Dates: start: 20180529
  5. DAFALGAN [Concomitant]
     Active Substance: ACETAMINOPHEN
     Indication: PRODUCT USED FOR UNKNOWN INDICATION
     Dosage: 1 G, PRN
     Route: 048
     Dates: start: 20180731
  6. PARAPLATIN [Suspect]
     Active Substance: CARBOPLATIN
     Indication: TONSIL CANCER
     Dosage: UNK UNK, UNKNOWN
     Route: 065
     Dates: start: 201805
  7. PANTOZOL CONTROL [Concomitant]
     Indication: PRODUCT USED FOR UNKNOWN INDICATION
     Dosage: 40 MG, DAILY
     Route: 048
     Dates: start: 20180603
  8. FLUOROURACIL. [Suspect]
     Active Substance: FLUOROURACIL
     Indication: TONSIL CANCER
     Dosage: UNK UNK, UNKNOWN
     Route: 065
     Dates: start: 201805
  9. NOVALGIN (METAMIZOLE SODIUM) [Concomitant]
     Active Substance: METAMIZOLE SODIUM
     Indication: PRODUCT USED FOR UNKNOWN INDICATION
     Dosage: 20-40 DROPS
     Dates: start: 20180731
  10. DEXAMETHASON GALEPHARM [Concomitant]
     Indication: PREMEDICATION
     Dosage: 4 MG, EVERY 12 HOURS
     Route: 048
     Dates: start: 20180529
  11. MAGNESIOCARD [Concomitant]
     Active Substance: MAGNESIUM ASPARTATE HYDROCHLORIDE
     Indication: PRODUCT USED FOR UNKNOWN INDICATION
     Dosage: 10 MMOL, DAILY
     Route: 048
     Dates: start: 20180709
  12. MINOCIN AKNE [Concomitant]
     Active Substance: MINOCYCLINE HYDROCHLORIDE
     Indication: PRODUCT USED FOR UNKNOWN INDICATION
     Dosage: 50 MG, DAILY
     Route: 048
     Dates: start: 20180709

REACTIONS (4)
  - Thrombocytopenia [Recovered/Resolved]
  - Diarrhoea [Recovered/Resolved]
  - Anaemia [Recovered/Resolved]
  - Pyrexia [Recovered/Resolved]

NARRATIVE: CASE EVENT DATE: 2018
